FAERS Safety Report 14689559 (Version 2)
Quarter: 2018Q1

REPORT INFORMATION
  Report Type: Spontaneous
  Country: JP (occurrence: JP)
  Receive Date: 20180328
  Receipt Date: 20180329
  Transmission Date: 20180509
  Serious: Yes (Other)
  Sender: FDA-Public Use
  Company Number: JP-PFIZER INC-2018128732

PATIENT
  Age: 34 Year
  Sex: Male

DRUGS (1)
  1. RAPALIMUS [Suspect]
     Active Substance: SIROLIMUS
     Indication: APPENDIX CANCER
     Dosage: 1 MG, WEEKLY
     Route: 048
     Dates: start: 20180215, end: 20180222

REACTIONS (3)
  - Dysphagia [Unknown]
  - Neoplasm progression [Unknown]
  - Off label use [Unknown]
